FAERS Safety Report 4634347-0 (Version None)
Quarter: 2005Q2

REPORT INFORMATION
  Report Type: 
  Country: None (occurrence: None)
  Receive Date: 20050411
  Receipt Date: 20041220
  Transmission Date: 20051028
  Serious: Yes (Hospitalization)
  Sender: FDA-Public Use
  Company Number: 2004117591

PATIENT
  Sex: Female

DRUGS (2)
  1. AROMASIN [Suspect]
     Indication: ILL-DEFINED DISORDER
     Dosage: 25 MG (25 MG, INTERVAL:  DAILY)
  2. CELEBREX [Suspect]
     Indication: ILL-DEFINED DISORDER
     Dosage: (400 MG, INTERVAL:  DAILY), ORAL
     Route: 048

REACTIONS (1)
  - DEEP VEIN THROMBOSIS [None]
